FAERS Safety Report 9370860 (Version 1)
Quarter: 2013Q2

REPORT INFORMATION
  Report Type: Spontaneous
  Country: FR (occurrence: FR)
  Receive Date: 20130626
  Receipt Date: 20130626
  Transmission Date: 20140414
  Serious: Yes (Hospitalization)
  Sender: FDA-Public Use
  Company Number: FR-NOVOPROD-381184

PATIENT
  Age: 75 Year
  Sex: Female

DRUGS (16)
  1. VICTOZA [Suspect]
     Indication: DIABETES MELLITUS
     Route: 058
     Dates: start: 20130224, end: 20130305
  2. VALACICLOVIR [Suspect]
     Dosage: 6 TABLETS DAILY
     Route: 048
     Dates: start: 20130303, end: 20130305
  3. SKENAN [Suspect]
     Route: 048
     Dates: start: 20130305, end: 20130305
  4. APROVEL [Suspect]
     Route: 048
     Dates: end: 20130305
  5. NOVORAPID [Concomitant]
     Route: 058
  6. LEVEMIR [Concomitant]
     Route: 058
  7. NOVONORM [Concomitant]
     Route: 048
  8. GABAPENTINE [Concomitant]
     Route: 048
     Dates: start: 20130305
  9. TOPALGIC                           /00599202/ [Concomitant]
     Route: 048
     Dates: start: 20130301
  10. LEVOFLOXACINE                      /01278901/ [Concomitant]
     Indication: URINARY TRACT INFECTION
     Route: 048
     Dates: start: 20130228, end: 20130309
  11. ACUPAN [Concomitant]
     Dosage: 4 PHARMACEUTICAL DOSES
     Route: 048
     Dates: start: 20130301
  12. PRIMPERAN [Concomitant]
     Route: 048
     Dates: start: 20130301
  13. INEXIUM                            /01479302/ [Concomitant]
     Route: 048
  14. PLAVIX [Concomitant]
     Route: 048
  15. LEVOTHYROX [Concomitant]
     Route: 048
  16. LASILIX                            /00032601/ [Concomitant]
     Route: 048

REACTIONS (2)
  - Anuria [Recovered/Resolved]
  - Renal failure acute [Recovered/Resolved]
